FAERS Safety Report 5441272-4 (Version None)
Quarter: 2007Q3

REPORT INFORMATION
  Report Type: 
  Country: None (occurrence: None)
  Receive Date: 20070901
  Receipt Date: 20070820
  Transmission Date: 20080115
  Serious: Yes (Other)
  Sender: FDA-Public Use
  Company Number: US-PFIZER INC-2007071512

PATIENT
  Sex: Female
  Weight: 93.2 kg

DRUGS (4)
  1. CHANTIX [Suspect]
     Indication: SMOKING CESSATION THERAPY
  2. SPIRIVA [Concomitant]
  3. DIGOXIN [Concomitant]
  4. BUMETANIDE [Concomitant]

REACTIONS (1)
  - WEIGHT DECREASED [None]
